FAERS Safety Report 6313002-5 (Version None)
Quarter: 2009Q3

REPORT INFORMATION
  Report Type: 
  Country: None (occurrence: None)
  Receive Date: 20090818
  Receipt Date: 20090807
  Transmission Date: 20100115
  Serious: Yes (Other)
  Sender: FDA-Public Use
  Company Number: PHHY2009CA33502

PATIENT

DRUGS (3)
  1. DIOVAN T30230++HY [Suspect]
     Dosage: 320 MG
  2. CALCIUM CHANNEL BLOCKERS [Concomitant]
  3. DIURETICS [Concomitant]

REACTIONS (2)
  - MICROALBUMINURIA [None]
  - URINE ALBUMIN/CREATININE RATIO INCREASED [None]
